FAERS Safety Report 17670404 (Version 1)
Quarter: 2020Q2

REPORT INFORMATION
  Report Type: Spontaneous
  Country: US (occurrence: US)
  Receive Date: 20200415
  Receipt Date: 20200415
  Transmission Date: 20200713
  Serious: Yes (Death)
  Sender: FDA-Public Use
  Company Number: None

PATIENT
  Age: 81 Year
  Sex: Male

DRUGS (21)
  1. ALPRAZOLAM. [Concomitant]
     Active Substance: ALPRAZOLAM
  2. EPINEPHRINE. [Concomitant]
     Active Substance: EPINEPHRINE
  3. FUROSEMIDE. [Concomitant]
     Active Substance: FUROSEMIDE
  4. PREDNISONE. [Concomitant]
     Active Substance: PREDNISONE
  5. COMBIVENT [Concomitant]
     Active Substance: ALBUTEROL SULFATE\IPRATROPIUM BROMIDE
  6. NEURONTIN [Concomitant]
     Active Substance: GABAPENTIN
  7. PANTOPRAZOLE [Concomitant]
     Active Substance: PANTOPRAZOLE
  8. SERTRALINE [Concomitant]
     Active Substance: SERTRALINE HYDROCHLORIDE
  9. ELIQUIS [Concomitant]
     Active Substance: APIXABAN
  10. GABAPENTIN. [Concomitant]
     Active Substance: GABAPENTIN
  11. ASPERCREME NOS [Concomitant]
     Active Substance: MENTHOL\TROLAMINE SALICYLATE
  12. MYRBETRIQ [Concomitant]
     Active Substance: MIRABEGRON
  13. BUDESONIDE. [Concomitant]
     Active Substance: BUDESONIDE
  14. MORPHINE [Concomitant]
     Active Substance: MORPHINE
  15. QUETIAPINE. [Concomitant]
     Active Substance: QUETIAPINE
  16. XOLAIR [Suspect]
     Active Substance: OMALIZUMAB
     Indication: ASTHMA
     Dosage: ?          OTHER FREQUENCY:Q28D;?
     Route: 058
     Dates: start: 20160127, end: 20200411
  17. POT CL MICRO [Concomitant]
  18. TRANILAST [Concomitant]
     Active Substance: TRANILAST
  19. MIRTAZAPINE. [Concomitant]
     Active Substance: MIRTAZAPINE
  20. LOSARTAN. [Concomitant]
     Active Substance: LOSARTAN
  21. TAMSULOSIN [Concomitant]
     Active Substance: TAMSULOSIN

REACTIONS (1)
  - Death [None]

NARRATIVE: CASE EVENT DATE: 20200411
